FAERS Safety Report 5476788-8 (Version None)
Quarter: 2007Q4

REPORT INFORMATION
  Report Type: 
  Country: None (occurrence: None)
  Receive Date: 20071003
  Receipt Date: 20071003
  Transmission Date: 20080405
  Serious: Yes (Hospitalization)
  Sender: FDA-Public Use
  Company Number: None

PATIENT
  Sex: Male
  Weight: 90.7194 kg

DRUGS (2)
  1. GEMCITABINE HCL [Suspect]
     Indication: PANCREATIC CARCINOMA
     Dosage: 1GM/M2 - 2100 MG WKLY X 3 IV
     Route: 042
     Dates: start: 20070706, end: 20070810
  2. LAPATINIB [Suspect]
     Indication: PANCREATIC CARCINOMA
     Dosage: 1250MG /DAY DAILY PO
     Route: 048
     Dates: start: 20070706, end: 20070817

REACTIONS (7)
  - ASCITES [None]
  - BLOOD CREATININE ABNORMAL [None]
  - DISEASE PROGRESSION [None]
  - DYSPNOEA [None]
  - FATIGUE [None]
  - LEFT VENTRICULAR DYSFUNCTION [None]
  - PAIN [None]
